FAERS Safety Report 9740763 (Version 1)
Quarter: 2013Q4

REPORT INFORMATION
  Report Type: Spontaneous
  Country: US (occurrence: US)
  Receive Date: 20131209
  Receipt Date: 20131209
  Transmission Date: 20140711
  Serious: Yes (Other)
  Sender: FDA-Public Use
  Company Number: US-PFIZER INC-2013347892

PATIENT
  Age: 68 Year
  Sex: Female
  Weight: 69.8 kg

DRUGS (5)
  1. ESTRING [Suspect]
     Indication: VULVOVAGINAL DRYNESS
     Dosage: 7.5 UG, PER 24 HOURS WHICH WAS SUPPOSED TO BE CHANGED EVERY THREE MONTHS
     Route: 067
     Dates: start: 2011
  2. ESTRING [Suspect]
     Indication: PROPHYLAXIS
  3. PREMARIN [Suspect]
     Indication: MENOPAUSAL SYMPTOMS
     Dosage: 0.3 MG, DAILY
     Dates: start: 1998
  4. PRAVASTATIN [Concomitant]
     Indication: BLOOD CHOLESTEROL INCREASED
     Dosage: 40 MG, UNK
  5. TRAZODONE [Concomitant]
     Indication: SLEEP DISORDER
     Dosage: 150 MG, UNK
     Dates: start: 2003

REACTIONS (5)
  - Peripheral arterial occlusive disease [Unknown]
  - Back disorder [Unknown]
  - Pain [Unknown]
  - Incorrect dose administered [Unknown]
  - Chloasma [Not Recovered/Not Resolved]
